FAERS Safety Report 18814517 (Version 3)
Quarter: 2021Q1

REPORT INFORMATION
  Report Type: Spontaneous
  Country: PT (occurrence: PT)
  Receive Date: 20210201
  Receipt Date: 20210330
  Transmission Date: 20210419
  Serious: Yes (Hospitalization, Disabling)
  Sender: FDA-Public Use
  Company Number: PT-ABBVIE-21K-130-3744741-00

PATIENT
  Age: 41 Year
  Sex: Female
  Weight: 76 kg

DRUGS (2)
  1. HUMIRA [Suspect]
     Active Substance: ADALIMUMAB
     Indication: RHEUMATOID ARTHRITIS
     Route: 058
     Dates: start: 2010, end: 20210109
  2. COMIRNATY [Interacting]
     Active Substance: TOZINAMERAN
     Indication: COVID-19 IMMUNISATION
     Dosage: COMIRNATY
     Route: 030
     Dates: start: 20201227, end: 20201227

REACTIONS (4)
  - Neck pain [Recovering/Resolving]
  - Pain in extremity [Recovering/Resolving]
  - Motor dysfunction [Recovering/Resolving]
  - Myelitis [Recovering/Resolving]

NARRATIVE: CASE EVENT DATE: 20210103
